FAERS Safety Report 22126481 (Version 1)
Quarter: 2023Q1

REPORT INFORMATION
  Report Type: Spontaneous
  Country: None (occurrence: GB)
  Receive Date: 20230322
  Receipt Date: 20230322
  Transmission Date: 20230418
  Serious: Yes (Other)
  Sender: FDA-Public Use
  Company Number: GB-B.Braun Medical Inc.-2139375

PATIENT
  Sex: Female

DRUGS (3)
  1. POTASSIUM CHLORIDE [Suspect]
     Active Substance: POTASSIUM CHLORIDE
     Indication: Infusion
  2. SODIUM CHLORIDE [Suspect]
     Active Substance: SODIUM CHLORIDE
  3. DEXTROSE [Suspect]
     Active Substance: DEXTROSE

REACTIONS (3)
  - Product prescribing error [Recovering/Resolving]
  - Wrong drug [Recovering/Resolving]
  - Blood glucose increased [Recovering/Resolving]
